FAERS Safety Report 5317672-X (Version None)
Quarter: 2007Q2

REPORT INFORMATION
  Report Type: 
  Country: None (occurrence: None)
  Receive Date: 20070507
  Receipt Date: 20070426
  Transmission Date: 20071010
  Serious: Yes (Other)
  Sender: FDA-Public Use
  Company Number: PHEH2007US06397

PATIENT
  Age: 59 Year
  Sex: Female

DRUGS (1)
  1. ZELNORM [Suspect]
     Indication: CONSTIPATION
     Dosage: 2 Q AM
     Route: 048
     Dates: start: 20060201, end: 20070425

REACTIONS (2)
  - CAROTID ARTERY DISEASE [None]
  - COORDINATION ABNORMAL [None]
